FAERS Safety Report 4844504-6 (Version None)
Quarter: 2005Q4

REPORT INFORMATION
  Report Type: 
  Country: None (occurrence: None)
  Receive Date: 20051203
  Receipt Date: 20050818
  Transmission Date: 20060501
  Serious: Yes (Death, Hospitalization, Other)
  Sender: FDA-Public Use
  Company Number: PHNU2005DE02922

PATIENT
  Age: 67 Year
  Sex: Male
  Weight: 53 kg

DRUGS (21)
  1. ZOMETA [Concomitant]
     Indication: PLASMACYTOMA
     Dosage: 4 MG, QMO
     Route: 042
     Dates: start: 20040801, end: 20050901
  2. AREDIA [Suspect]
     Indication: PLASMACYTOMA
     Dosage: 90 MG, QMO
     Route: 042
     Dates: start: 19980101, end: 20040701
  3. MELPHALAN [Concomitant]
     Dosage: 6 CYCLES
     Dates: start: 19971101, end: 19980906
  4. MELPHALAN [Concomitant]
     Dosage: 1 CYCLE WITH HIGH DOSES
     Dates: start: 19990401, end: 19990401
  5. PREDNISONE [Concomitant]
     Dosage: 6 CYCLES
     Dates: start: 19971101, end: 19980601
  6. VINCRISTINE [Concomitant]
     Dosage: 3 CYCLES
     Dates: start: 19971101, end: 19980601
  7. ADRIAMYCIN PFS [Concomitant]
     Dosage: 3 CYCLES
     Dates: start: 19971101, end: 19980601
  8. DEXAMETHASONE [Suspect]
     Dosage: 3 CYCLES
     Dates: start: 19971101, end: 19980601
  9. DEXAMETHASONE [Suspect]
     Dosage: 4 CYCLES
     Dates: start: 20020301, end: 20020901
  10. DEXAMETHASONE [Suspect]
     Dosage: 2 CYCLES
     Dates: start: 20040401, end: 20040401
  11. DEXAMETHASONE [Suspect]
     Dates: start: 20041201, end: 20050101
  12. ENDOXAN [Suspect]
     Dosage: HIGH DOSES
     Dates: start: 19981001, end: 19981001
  13. ENDOXAN [Suspect]
     Route: 048
     Dates: start: 20050301, end: 20050401
  14. CHEMOTHERAPEUTICS,OTHER [Concomitant]
     Dates: start: 19990101
  15. THALIDOMIDE [Concomitant]
     Dosage: 4 CYCLES
     Dates: start: 20020301, end: 20020901
  16. IDARUBICIN HCL [Concomitant]
     Dosage: 4 CYCLES
     Dates: start: 20020301, end: 20020901
  17. CYCLOPHOSPHAMIDE [Concomitant]
     Dosage: 4 CYCLES
     Dates: start: 20020301, end: 20020901
  18. BENDAMUSTINE [Concomitant]
     Dosage: 2 CYCLES
     Dates: start: 20030301, end: 20030401
  19. VELCADE [Suspect]
     Dosage: 2 CYCLES; 2 CYCLE IN REDUSED DOSAGE
     Dates: start: 20040201, end: 20040301
  20. VELCADE [Suspect]
     Dosage: 2 CYCLES
     Dates: start: 20040401, end: 20040401
  21. VELCADE [Suspect]
     Dates: start: 20041201, end: 20050101

REACTIONS (38)
  - ABSCESS JAW [None]
  - BACTERIA BLOOD IDENTIFIED [None]
  - BLOOD ALKALINE PHOSPHATASE INCREASED [None]
  - BLOOD CALCIUM DECREASED [None]
  - BLOOD CREATININE INCREASED [None]
  - BLOOD LACTATE DEHYDROGENASE INCREASED [None]
  - BLOOD POTASSIUM INCREASED [None]
  - BLOOD UREA INCREASED [None]
  - BRONCHITIS [None]
  - C-REACTIVE PROTEIN INCREASED [None]
  - CACHEXIA [None]
  - COMPUTERISED TOMOGRAM ABNORMAL [None]
  - COUGH [None]
  - CREATININE RENAL CLEARANCE DECREASED [None]
  - DEPRESSION [None]
  - EMPHYSEMA [None]
  - GAMMA-GLUTAMYLTRANSFERASE INCREASED [None]
  - GENERAL PHYSICAL CONDITION ABNORMAL [None]
  - HAEMATOMA [None]
  - HAEMOGLOBIN DECREASED [None]
  - HEART RATE INCREASED [None]
  - MALIGNANT NEOPLASM PROGRESSION [None]
  - OEDEMA PERIPHERAL [None]
  - ORAL SURGERY [None]
  - OSTEOMYELITIS [None]
  - OSTEONECROSIS [None]
  - PANCYTOPENIA [None]
  - PETECHIAE [None]
  - PROTHROMBIN TIME PROLONGED [None]
  - PYREXIA [None]
  - RALES [None]
  - RENAL FAILURE [None]
  - SOMNOLENCE [None]
  - STEM CELL TRANSPLANT [None]
  - SUPRAVENTRICULAR TACHYCARDIA [None]
  - THROMBOCYTOPENIA [None]
  - WHITE BLOOD CELL COUNT DECREASED [None]
  - X-RAY ABNORMAL [None]
